FAERS Safety Report 24585030 (Version 1)
Quarter: 2024Q4

REPORT INFORMATION
  Report Type: Spontaneous
  Country: FR (occurrence: None)
  Receive Date: 20241106
  Receipt Date: 20241106
  Transmission Date: 20250114
  Serious: Yes (Life-Threatening, Disabling)
  Sender: Public
  Company Number: None

PATIENT
  Age: 75 Year
  Sex: Male
  Weight: 51 kg

DRUGS (10)
  1. MIDAZOLAM [Suspect]
     Active Substance: MIDAZOLAM
     Indication: Anaesthesia
     Route: 042
     Dates: start: 20240923, end: 20240923
  2. MIDAZOLAM [Suspect]
     Active Substance: MIDAZOLAM
     Indication: Cataract operation
  3. SUFENTANIL [Suspect]
     Active Substance: SUFENTANIL
  4. KARDEGIC [Concomitant]
     Active Substance: ASPIRIN DL-LYSINE
  5. BISOPROLOL [Concomitant]
     Active Substance: BISOPROLOL
  6. Vitamins A [Concomitant]
  7. C [Concomitant]
  8. TOCOPHEROL [Concomitant]
     Active Substance: TOCOPHEROL
  9. D [Concomitant]
  10. OMEGA 3 [Concomitant]
     Active Substance: CAPSAICIN

REACTIONS (5)
  - Asphyxia [None]
  - Respiratory arrest [None]
  - Aphasia [None]
  - Paradoxical drug reaction [None]
  - Troponin [None]

NARRATIVE: CASE EVENT DATE: 20240923
